FAERS Safety Report 13092523 (Version 1)
Quarter: 2017Q1

REPORT INFORMATION
  Report Type: Spontaneous
  Country: US (occurrence: US)
  Receive Date: 20170106
  Receipt Date: 20170106
  Transmission Date: 20170428
  Serious: No
  Sender: FDA-Public Use
  Company Number: US-JNJFOC-20161200191

PATIENT
  Age: 80 Year
  Sex: Female
  Weight: 61.69 kg

DRUGS (1)
  1. TYLENOL EXTRA STRENGTH [Suspect]
     Active Substance: ACETAMINOPHEN
     Indication: PAIN
     Dosage: 1 TABLET,ONCE R TWICE DAILY.
     Route: 048

REACTIONS (1)
  - Intentional underdose [Unknown]
